FAERS Safety Report 4957771-5 (Version None)
Quarter: 2006Q1

REPORT INFORMATION
  Report Type: 
  Country: None (occurrence: None)
  Receive Date: 20060324
  Receipt Date: 20060314
  Transmission Date: 20060701
  Serious: Yes (Hospitalization, Other)
  Sender: FDA-Public Use
  Company Number: 2006036012

PATIENT
  Age: 49 Year
  Sex: Male
  Weight: 108.8633 kg

DRUGS (6)
  1. CELEBREX [Suspect]
     Indication: ARTHRITIS
     Dates: start: 20040101
  2. LIPITOR [Suspect]
     Indication: MYOCARDIAL INFARCTION
     Dosage: 80 MG (80 MG, 1 IN 1 D)
     Dates: start: 20060130
  3. ALEVE [Concomitant]
  4. ADVIL [Concomitant]
  5. TOPROL-XL [Concomitant]
  6. ALTACE [Concomitant]

REACTIONS (7)
  - ARTHRITIS [None]
  - CHONDROPATHY [None]
  - CONDITION AGGRAVATED [None]
  - DRUG EFFECT DECREASED [None]
  - MYOCARDIAL INFARCTION [None]
  - PAIN IN EXTREMITY [None]
  - WALKING AID USER [None]
